FAERS Safety Report 5808525-9 (Version None)
Quarter: 2008Q3

REPORT INFORMATION
  Report Type: 
  Country: None (occurrence: None)
  Receive Date: 20080709
  Receipt Date: 20080709
  Transmission Date: 20090109
  Serious: Yes (Hospitalization)
  Sender: FDA-Public Use
  Company Number: None

PATIENT
  Age: 54 Year
  Sex: Male
  Weight: 128 kg

DRUGS (2)
  1. SULFAMETHOXAZOLE AND TRIMETHOPRIM [Suspect]
     Dosage: 2 TAB BID PO
     Route: 048
     Dates: start: 20000831, end: 20080523
  2. LAMIVUDINE AND ZIDOVUDINE [Suspect]
     Dosage: 1 TAB BID PO
     Route: 048
     Dates: start: 20030523, end: 20080523

REACTIONS (1)
  - PANCYTOPENIA [None]
